FAERS Safety Report 8197622-1 (Version None)
Quarter: 2012Q1

REPORT INFORMATION
  Report Type: 
  Country: None (occurrence: None)
  Receive Date: 20120307
  Receipt Date: 20120222
  Transmission Date: 20120608
  Serious: No
  Sender: FDA-Public Use
  Company Number: SPI201200033

PATIENT
  Age: 70 Year
  Sex: Male
  Weight: 80.7 kg

DRUGS (11)
  1. CRESTOR [Concomitant]
  2. AMITIZA [Suspect]
     Indication: CONSTIPATION
     Dosage: 24 MCG, SINGLE, ORAL ; 8 MCG, BID, ORAL
     Route: 048
     Dates: start: 20120101, end: 20120101
  3. AMITIZA [Suspect]
     Indication: CONSTIPATION
     Dosage: 24 MCG, SINGLE, ORAL ; 8 MCG, BID, ORAL
     Route: 048
     Dates: start: 20120101
  4. EFFIENT [Concomitant]
  5. VITAMIN D3 (VITAMIN D3) [Concomitant]
  6. WELCHOL [Concomitant]
  7. CARVEDILOL [Concomitant]
  8. PREVACID [Concomitant]
  9. POLIOCOSANOL (POLICOSANOL) [Concomitant]
  10. ALPRAZOLAM [Concomitant]
  11. LOSARTAN POTASSIUM [Concomitant]

REACTIONS (5)
  - DIZZINESS [None]
  - CARDIAC DISORDER [None]
  - CHEST PAIN [None]
  - BLOOD PRESSURE INCREASED [None]
  - DIARRHOEA [None]
